FAERS Safety Report 7622709-9 (Version None)
Quarter: 2011Q3

REPORT INFORMATION
  Report Type: 
  Country: None (occurrence: None)
  Receive Date: 20110712
  Receipt Date: 20110627
  Transmission Date: 20111222
  Serious: Yes (Hospitalization, Other)
  Sender: FDA-Public Use
  Company Number: 2011MA008119

PATIENT
  Age: 73 Year
  Sex: Female
  Weight: 52 kg

DRUGS (7)
  1. ROPIVACAINE HYDROCHLORIDE [Suspect]
     Indication: LOCAL ANAESTHESIA
     Dosage: 0.75 PCT
  2. MIDAZOLAM HCL [Suspect]
     Indication: LOCAL ANAESTHESIA
     Dosage: 1 MG
  3. AMLODIPINE [Concomitant]
  4. LIDOCAINE [Suspect]
     Indication: LOCAL ANAESTHESIA
     Dosage: 1 PCT
  5. FLURBIPROFEN [Suspect]
     Indication: LOCAL ANAESTHESIA
     Dosage: 50 MG
  6. PROPOFOL [Suspect]
     Indication: LOCAL ANAESTHESIA
     Dosage: 2 MG/KG, H
  7. FENTANYL [Suspect]
     Indication: LOCAL ANAESTHESIA
     Dosage: 50 MCG

REACTIONS (3)
  - TOXICITY TO VARIOUS AGENTS [None]
  - NEUROTOXICITY [None]
  - TONIC CONVULSION [None]
